FAERS Safety Report 25717991 (Version 1)
Quarter: 2025Q3

REPORT INFORMATION
  Report Type: Spontaneous
  Country: US (occurrence: US)
  Receive Date: 20250822
  Receipt Date: 20250822
  Transmission Date: 20251021
  Serious: No
  Sender: MERCK SHARP & DOHME LLC
  Company Number: US-009507513-2315175

PATIENT
  Age: 73 Year
  Sex: Female

DRUGS (3)
  1. PEMBROLIZUMAB [Suspect]
     Active Substance: PEMBROLIZUMAB
     Indication: Genital neoplasm malignant female
  2. PACLITAXEL [Concomitant]
     Active Substance: PACLITAXEL
     Indication: Genital neoplasm malignant female
  3. CARBOPLATIN [Concomitant]
     Active Substance: CARBOPLATIN
     Indication: Genital neoplasm malignant female

REACTIONS (1)
  - Product use in unapproved indication [Unknown]
